FAERS Safety Report 9351912 (Version 4)
Quarter: 2013Q3

REPORT INFORMATION
  Report Type: Report from Study
  Country: JP (occurrence: JP)
  Receive Date: 20130617
  Receipt Date: 20130820
  Transmission Date: 20140515
  Serious: Yes (Hospitalization)
  Sender: FDA-Public Use
  Company Number: JP-GLAXOSMITHKLINE-B0887711A

PATIENT
  Age: 30 Year
  Sex: Male
  Weight: 55 kg

DRUGS (3)
  1. VOTRIENT [Suspect]
     Indication: EXTRA-OSSEOUS EWING^S SARCOMA
     Dosage: 800MG PER DAY
     Route: 048
     Dates: start: 20130307, end: 20130411
  2. VOTRIENT [Suspect]
     Indication: EXTRA-OSSEOUS EWING^S SARCOMA
     Dosage: 800MG PER DAY
     Route: 048
     Dates: start: 20130417, end: 20130504
  3. VOTRIENT [Suspect]
     Indication: EXTRA-OSSEOUS EWING^S SARCOMA
     Dosage: 600MG PER DAY
     Route: 048

REACTIONS (4)
  - Pneumothorax [Recovered/Resolved]
  - Tracheo-oesophageal fistula [Not Recovered/Not Resolved]
  - Herpes zoster [Recovered/Resolved]
  - Hepatic function abnormal [Recovered/Resolved]
